FAERS Safety Report 6137689-5 (Version None)
Quarter: 2009Q1

REPORT INFORMATION
  Report Type: 
  Country: None (occurrence: None)
  Receive Date: 20090327
  Receipt Date: 20090316
  Transmission Date: 20090719
  Serious: Yes (Other)
  Sender: FDA-Public Use
  Company Number: 09-000433

PATIENT
  Age: 23 Year
  Sex: Female

DRUGS (2)
  1. DORYX [Suspect]
     Dosage: 100 MG, BID, ORAL
     Route: 048
  2. TRETINOIN [Concomitant]

REACTIONS (6)
  - CRANIAL NERVE PALSIES MULTIPLE [None]
  - HEADACHE [None]
  - INTRACRANIAL PRESSURE INCREASED [None]
  - NAUSEA [None]
  - PAPILLOEDEMA [None]
  - VISION BLURRED [None]
